FAERS Safety Report 14129041 (Version 3)
Quarter: 2018Q1

REPORT INFORMATION
  Report Type: Report from Study
  Country: FR (occurrence: FR)
  Receive Date: 20171026
  Receipt Date: 20180301
  Transmission Date: 20180508
  Serious: Yes (Death, Life-Threatening, Hospitalization, Other)
  Sender: FDA-Public Use
  Company Number: FR-PFIZER INC-2017459561

PATIENT
  Age: 65 Year
  Sex: Female
  Weight: 80 kg

DRUGS (2)
  1. SUTENT [Suspect]
     Active Substance: SUNITINIB MALATE
     Indication: METASTATIC RENAL CELL CARCINOMA
     Dosage: 50 MG, CYCLIC (SCHEME 4/6)
     Dates: start: 20160816, end: 20160901
  2. LEVOTHYROX [Concomitant]
     Active Substance: LEVOTHYROXINE
     Indication: HYPOTHYROIDISM
     Dosage: UNK
     Route: 048
     Dates: start: 1995

REACTIONS (12)
  - Thrombocytopenia [Unknown]
  - Dysphagia [Unknown]
  - Pain in extremity [Unknown]
  - Asthenia [Unknown]
  - Stomatitis [Unknown]
  - Vulvovaginal inflammation [Unknown]
  - Hypotension [Fatal]
  - Decreased appetite [Unknown]
  - Multiple organ dysfunction syndrome [Fatal]
  - Hepatocellular injury [Unknown]
  - Shock haemorrhagic [Fatal]
  - Gait disturbance [Unknown]

NARRATIVE: CASE EVENT DATE: 20160827
